FAERS Safety Report 11933394 (Version 2)
Quarter: 2016Q1

REPORT INFORMATION
  Report Type: Spontaneous
  Country: US (occurrence: US)
  Receive Date: 20160121
  Receipt Date: 20160127
  Transmission Date: 20160526
  Serious: Yes (Other)
  Sender: FDA-Public Use
  Company Number: US-ROCHE-1697905

PATIENT
  Age: 79 Year
  Sex: Female

DRUGS (7)
  1. XOLAIR [Suspect]
     Active Substance: OMALIZUMAB
     Indication: PRODUCT USED FOR UNKNOWN INDICATION
     Route: 065
  2. THEOPHYLLINE [Concomitant]
     Active Substance: THEOPHYLLINE ANHYDROUS
  3. ALBUTEROL. [Concomitant]
     Active Substance: ALBUTEROL
     Dosage: ROUTE OF ADMINSTRATION- RESPIRATORY(INHALATION)
     Route: 065
  4. SINGULAIR [Concomitant]
     Active Substance: MONTELUKAST SODIUM
  5. MEDROL [Concomitant]
     Active Substance: METHYLPREDNISOLONE
  6. SPIRIVA [Concomitant]
     Active Substance: TIOTROPIUM BROMIDE MONOHYDRATE
     Route: 065
  7. ACTEMRA [Suspect]
     Active Substance: TOCILIZUMAB
     Indication: POLYMYALGIA RHEUMATICA
     Route: 042
     Dates: start: 201512

REACTIONS (4)
  - White blood cell count decreased [Unknown]
  - Lip swelling [Unknown]
  - Epistaxis [Recovering/Resolving]
  - Pyrexia [Unknown]

NARRATIVE: CASE EVENT DATE: 20160112
